FAERS Safety Report 8168556-3 (Version None)
Quarter: 2012Q1

REPORT INFORMATION
  Report Type: 
  Country: None (occurrence: None)
  Receive Date: 20120227
  Receipt Date: 20120227
  Transmission Date: 20120608
  Serious: No
  Sender: FDA-Public Use
  Company Number: None

PATIENT
  Sex: Female
  Weight: 52.616 kg

DRUGS (1)
  1. SIMPLE SOOTHING EYE BALM [Suspect]
     Dates: start: 20120210, end: 20120224

REACTIONS (3)
  - EYE SWELLING [None]
  - CONTUSION [None]
  - EYE IRRITATION [None]
